FAERS Safety Report 12931496 (Version 2)
Quarter: 2017Q1

REPORT INFORMATION
  Report Type: Spontaneous
  Country: US (occurrence: US)
  Receive Date: 20161110
  Receipt Date: 20170127
  Transmission Date: 20170428
  Serious: No
  Sender: FDA-Public Use
  Company Number: US-SHIRE-US201616825

PATIENT
  Age: 75 Year
  Sex: Female
  Weight: 62.59 kg

DRUGS (3)
  1. LATANOPROST. [Concomitant]
     Active Substance: LATANOPROST
     Indication: GLAUCOMA
     Dosage: 1 GTT (EACH EYE), 1X/DAY:QD (AT NIGHT)
     Route: 047
     Dates: start: 20160823
  2. TIMOLOL. [Concomitant]
     Active Substance: TIMOLOL
     Indication: GLAUCOMA
     Dosage: 1 GTT, 1X/DAY:QD (EVERY MORNING)
     Route: 047
     Dates: start: 20160529
  3. XIIDRA [Suspect]
     Active Substance: LIFITEGRAST
     Indication: DRY EYE
     Dosage: 1 GTT (IN EACH EYE), 2X/DAY:BID (IN THE MORNING AND AT NIGHT)
     Route: 047
     Dates: start: 20161106

REACTIONS (5)
  - Oropharyngeal pain [Unknown]
  - Foreign body sensation in eyes [Unknown]
  - Instillation site pain [Unknown]
  - Vision blurred [Unknown]
  - Dysgeusia [Unknown]

NARRATIVE: CASE EVENT DATE: 201611
